FAERS Safety Report 9070301 (Version 2)
Quarter: 2013Q1

REPORT INFORMATION
  Report Type: Spontaneous
  Country: US (occurrence: US)
  Receive Date: 20130215
  Receipt Date: 20130322
  Transmission Date: 20140127
  Serious: Yes (Hospitalization)
  Sender: FDA-Public Use
  Company Number: US-009507513-1302USA006349

PATIENT
  Sex: Male

DRUGS (2)
  1. DULERA [Suspect]
     Indication: CHRONIC OBSTRUCTIVE PULMONARY DISEASE
     Dosage: UNK
     Route: 055
     Dates: start: 201212
  2. COUMADIN [Concomitant]

REACTIONS (2)
  - Joint dislocation [Unknown]
  - Product quality issue [Unknown]
